FAERS Safety Report 21356664 (Version 1)
Quarter: 2022Q3

REPORT INFORMATION
  Report Type: Spontaneous
  Country: CN (occurrence: CN)
  Receive Date: 20220920
  Receipt Date: 20220920
  Transmission Date: 20221027
  Serious: Yes (Other)
  Sender: FDA-Public Use
  Company Number: CN-AMERICAN REGENT INC-2022002680

PATIENT
  Age: 35 Year
  Sex: Female
  Weight: 46 kg

DRUGS (1)
  1. VENOFER [Suspect]
     Active Substance: IRON SUCROSE
     Indication: Anaemia
     Dosage: 200 MG DILUTED IN 100 ML VEHICLE SOLUTION (SODIUM CHLORIDE) (200 MG, 1 IN 1 D)
     Dates: start: 20220828, end: 20220828

REACTIONS (2)
  - Chills [Recovered/Resolved]
  - Pyrexia [Recovered/Resolved]

NARRATIVE: CASE EVENT DATE: 20220828
